FAERS Safety Report 4895369-8 (Version None)
Quarter: 2006Q1

REPORT INFORMATION
  Report Type: 
  Country: None (occurrence: None)
  Receive Date: 20060124
  Receipt Date: 20060112
  Transmission Date: 20060701
  Serious: Yes (Hospitalization)
  Sender: FDA-Public Use
  Company Number: 2005BH001185

PATIENT
  Age: 74 Year
  Sex: Male

DRUGS (2)
  1. DIANEAL [Suspect]
     Indication: RENAL FAILURE CHRONIC
     Dosage: 1500 ML; 4X A DAY; IP
     Route: 033
     Dates: start: 20050725, end: 20050817
  2. DIANEAL [Suspect]
     Indication: RENAL FAILURE CHRONIC
     Dosage: 1500 ML; 4X A DAY; IP
     Route: 033
     Dates: start: 20050818

REACTIONS (3)
  - ANOREXIA [None]
  - BLISTER [None]
  - GENERAL PHYSICAL HEALTH DETERIORATION [None]
